FAERS Safety Report 17976998 (Version 2)
Quarter: 2020Q3

REPORT INFORMATION
  Report Type: Spontaneous
  Country: SE (occurrence: SE)
  Receive Date: 20200703
  Receipt Date: 20200709
  Transmission Date: 20201103
  Serious: No
  Sender: FDA-Public Use
  Company Number: SE-SA-2020SA151738

PATIENT

DRUGS (1)
  1. LANTUS [Suspect]
     Active Substance: INSULIN GLARGINE
     Dosage: 15 IN THE EVENING AND 14 IN THE MORNING
     Route: 065

REACTIONS (13)
  - Wrong drug [Unknown]
  - Off label use [Unknown]
  - Bone swelling [Not Recovered/Not Resolved]
  - Male sterilisation [Unknown]
  - Illness [Not Recovered/Not Resolved]
  - Testicular swelling [Not Recovered/Not Resolved]
  - Product label issue [Unknown]
  - Peripheral swelling [Not Recovered/Not Resolved]
  - Joint swelling [Not Recovered/Not Resolved]
  - Intentional dose omission [Unknown]
  - Sleep disorder [Not Recovered/Not Resolved]
  - Drug ineffective [Unknown]
  - Cardiac disorder [Not Recovered/Not Resolved]
